FAERS Safety Report 8911688 (Version 4)
Quarter: 2014Q3

REPORT INFORMATION
  Report Type: Spontaneous
  Country: US (occurrence: US)
  Receive Date: 20121116
  Receipt Date: 20140902
  Transmission Date: 20150326
  Serious: Yes (Life-Threatening, Hospitalization, Disabling)
  Sender: FDA-Public Use
  Company Number: US-BAYER-2012-117938

PATIENT
  Age: 34 Year
  Sex: Female
  Weight: 62.13 kg

DRUGS (5)
  1. PERCOCET [Concomitant]
     Active Substance: ACETAMINOPHEN\OXYCODONE HYDROCHLORIDE
  2. OXYCODONE [Concomitant]
     Active Substance: OXYCODONE
  3. AMBIEN [Concomitant]
     Active Substance: ZOLPIDEM TARTRATE
     Dosage: UNK UNK, HS
  4. ZOFRAN [Concomitant]
     Active Substance: ONDANSETRON HYDROCHLORIDE
     Dosage: UNK UNK, PRN
  5. YAZ [Suspect]
     Active Substance: DROSPIRENONE\ETHINYL ESTRADIOL
     Indication: OVARIAN CYST
     Dosage: UNK
     Dates: start: 201010, end: 201204

REACTIONS (7)
  - Injury [None]
  - Anhedonia [None]
  - General physical health deterioration [None]
  - Pain [None]
  - Anxiety [None]
  - Deep vein thrombosis [None]
  - Emotional distress [None]

NARRATIVE: CASE EVENT DATE: 20120425
